FAERS Safety Report 25741111 (Version 1)
Quarter: 2025Q3

REPORT INFORMATION
  Report Type: Spontaneous
  Country: EU (occurrence: EU)
  Receive Date: 20250829
  Receipt Date: 20250829
  Transmission Date: 20251020
  Serious: Yes (Hospitalization)
  Sender: TEVA
  Company Number: None

PATIENT
  Age: 81 Year
  Sex: Male

DRUGS (2)
  1. CLOPIDOGREL [Interacting]
     Active Substance: CLOPIDOGREL BISULFATE
     Indication: Vascular stent insertion
     Dosage: 1 A DAY, CLOPIDOGREL (7300A)
     Route: 048
     Dates: start: 20250610, end: 20250717
  2. ASPIRIN [Interacting]
     Active Substance: ASPIRIN
     Indication: Vascular stent insertion
     Dosage: EFG GASTRO-RESISTANT TABLETS, 60 TABLETS
     Route: 048
     Dates: start: 20250610, end: 20250717

REACTIONS (2)
  - Upper gastrointestinal haemorrhage [Recovered/Resolved]
  - Anaemia [Recovering/Resolving]

NARRATIVE: CASE EVENT DATE: 20250717
